FAERS Safety Report 7308151-9 (Version None)
Quarter: 2011Q1

REPORT INFORMATION
  Report Type: 
  Country: None (occurrence: None)
  Receive Date: 20110223
  Receipt Date: 20110217
  Transmission Date: 20110831
  Serious: Yes (Death)
  Sender: FDA-Public Use
  Company Number: JP-JNJFOC-20110103417

PATIENT
  Age: 70 Year
  Sex: Male

DRUGS (2)
  1. ANPEC (MORPHINE HYDROCHLORIDE) [Suspect]
     Indication: BREAKTHROUGH PAIN
     Route: 054
  2. DUROTEP MT [Suspect]
     Indication: CANCER PAIN
     Route: 062

REACTIONS (3)
  - NEOPLASM MALIGNANT [None]
  - NAUSEA [None]
  - MULTI-ORGAN FAILURE [None]
